FAERS Safety Report 25225039 (Version 2)
Quarter: 2025Q2

REPORT INFORMATION
  Report Type: Spontaneous
  Country: US (occurrence: US)
  Receive Date: 20250422
  Receipt Date: 20250429
  Transmission Date: 20250717
  Serious: No
  Sender: TORRENT PHARMA INC.
  Company Number: US-TORRENT-00014306

PATIENT
  Age: 83 Year
  Sex: Male

DRUGS (1)
  1. ITRACONAZOLE [Suspect]
     Active Substance: ITRACONAZOLE
     Indication: Fungal infection
     Route: 065

REACTIONS (1)
  - Blood glucose increased [Recovered/Resolved]
